FAERS Safety Report 10744223 (Version 1)
Quarter: 2015Q1

REPORT INFORMATION
  Report Type: Spontaneous
  Country: US (occurrence: None)
  Receive Date: 20150126
  Receipt Date: 20150126
  Transmission Date: 20150721
  Serious: No
  Sender: FDA-Public Use
  Company Number: None

PATIENT
  Age: 54 Year
  Sex: Male
  Weight: 90.72 kg

DRUGS (1)
  1. TOPICORT [Suspect]
     Active Substance: DESOXIMETASONE
     Indication: PSORIASIS
     Dosage: TWICE DAILY APPLIED TO A SURFACE, USUALLY THE SKIN
     Route: 061
     Dates: start: 20141023, end: 20141101

REACTIONS (7)
  - Abasia [None]
  - Psoriasis [None]
  - Condition aggravated [None]
  - Tendon rupture [None]
  - Pain [None]
  - Muscle tightness [None]
  - Movement disorder [None]

NARRATIVE: CASE EVENT DATE: 20150124
